FAERS Safety Report 5567605-6 (Version None)
Quarter: 2007Q4

REPORT INFORMATION
  Report Type: 
  Country: None (occurrence: None)
  Receive Date: 20071214
  Receipt Date: 20071204
  Transmission Date: 20080405
  Serious: Yes (Other)
  Sender: FDA-Public Use
  Company Number: 2007335749

PATIENT
  Age: 48 Year
  Sex: Female

DRUGS (1)
  1. LISTERINE [Suspect]
     Indication: DRUG USE FOR UNKNOWN INDICATION
     Dosage: ORAL
     Route: 048
     Dates: start: 20070101

REACTIONS (7)
  - FOOD ALLERGY [None]
  - HYPERSENSITIVITY [None]
  - ORAL DISORDER [None]
  - ORAL FUNGAL INFECTION [None]
  - ORAL PAIN [None]
  - SKIN PAPILLOMA [None]
  - TONGUE DISORDER [None]
